FAERS Safety Report 22245987 (Version 1)
Quarter: 2023Q2

REPORT INFORMATION
  Report Type: Spontaneous
  Country: CN (occurrence: CN)
  Receive Date: 20230424
  Receipt Date: 20230424
  Transmission Date: 20230721
  Serious: Yes (Other)
  Sender: FDA-Public Use
  Company Number: ALC2023CN002019

PATIENT
  Age: 65 Year
  Sex: Male
  Weight: 64 kg

DRUGS (2)
  1. DEXTRAN 70\GLYCERIN\HYPROMELLOSES [Suspect]
     Active Substance: DEXTRAN 70\GLYCERIN\HYPROMELLOSES
     Indication: Cataract
     Dosage: 0.050 ML, TID
     Route: 047
     Dates: start: 20230328, end: 20230329
  2. LEVOFLOXACIN HYDROCHLORIDE [Suspect]
     Active Substance: LEVOFLOXACIN HYDROCHLORIDE
     Indication: Cataract
     Dosage: 0.050 ML, TID
     Route: 047
     Dates: start: 20230328, end: 20230329

REACTIONS (2)
  - Skin swelling [Recovering/Resolving]
  - Erythema [Recovering/Resolving]

NARRATIVE: CASE EVENT DATE: 20230328
